FAERS Safety Report 7562874-5 (Version None)
Quarter: 2011Q2

REPORT INFORMATION
  Report Type: 
  Country: None (occurrence: None)
  Receive Date: 20110622
  Receipt Date: 20110616
  Transmission Date: 20111010
  Serious: Yes (Hospitalization)
  Sender: FDA-Public Use
  Company Number: US-PFIZER INC-US-WYE-H16452110

PATIENT
  Sex: Male
  Weight: 59.6 kg

DRUGS (11)
  1. TEMSIROLIMUS [Suspect]
     Indication: HEPATIC NEOPLASM MALIGNANT
     Dosage: 15 MG, WEEKLY
     Route: 042
  2. ASCORBIC ACID [Concomitant]
  3. GLIBENCLAMIDE [Concomitant]
     Dosage: UNK
     Route: 065
     Dates: start: 20100702
  4. POTASSIUM PHOSPHATE MONOBASIC [Concomitant]
     Route: 065
  5. FLOMAX [Concomitant]
     Route: 065
  6. SORAFENIB [Suspect]
     Indication: HEPATIC NEOPLASM MALIGNANT
     Dosage: 200 MG 1X/DAY
     Route: 048
     Dates: start: 20100423, end: 20100806
  7. CALCIUM [Concomitant]
  8. IMODIUM MULTI-SYMPTOM RELIEF [Concomitant]
     Indication: DIARRHOEA
     Route: 065
  9. ERGOCALCIFEROL [Concomitant]
  10. METOPROLOL [Concomitant]
     Route: 065
  11. TEMSIROLIMUS [Suspect]
     Dosage: 10 MG, 1X/WK
     Route: 042
     Dates: start: 20100423, end: 20100806

REACTIONS (2)
  - DEHYDRATION [None]
  - DIARRHOEA [None]
